FAERS Safety Report 24354824 (Version 1)
Quarter: 2024Q3

REPORT INFORMATION
  Report Type: Spontaneous
  Country: US (occurrence: US)
  Receive Date: 20240923
  Receipt Date: 20240923
  Transmission Date: 20241016
  Serious: No
  Sender: MILLICENT HOLDINGS
  Company Number: US-Millicent Holdings Ltd.-MILL20241163

PATIENT
  Sex: Female

DRUGS (2)
  1. FEMRING [Suspect]
     Active Substance: ESTRADIOL ACETATE
     Indication: Product used for unknown indication
     Dosage: 0.10 MG/DAY
     Route: 067
     Dates: start: 20240905
  2. COMBIPATCH [Concomitant]
     Active Substance: ESTRADIOL\NORETHINDRONE ACETATE
     Indication: Product used for unknown indication
     Dosage: UNKNOWN
     Route: 065

REACTIONS (7)
  - Vaginal discharge [Not Recovered/Not Resolved]
  - Vaginal haemorrhage [Not Recovered/Not Resolved]
  - Hot flush [Not Recovered/Not Resolved]
  - Migraine [Not Recovered/Not Resolved]
  - Night sweats [Recovered/Resolved]
  - Device expulsion [Recovered/Resolved]
  - Drug ineffective [Unknown]

NARRATIVE: CASE EVENT DATE: 20240901
